FAERS Safety Report 23604849 (Version 2)
Quarter: 2024Q2

REPORT INFORMATION
  Report Type: Spontaneous
  Country: US (occurrence: US)
  Receive Date: 20240307
  Receipt Date: 20240612
  Transmission Date: 20240716
  Serious: Yes (Other)
  Sender: FDA-Public Use
  Company Number: US-IMMUNOGEN, INC.-US-IMGN-24-00043

PATIENT
  Age: 76 Year
  Sex: Female

DRUGS (5)
  1. ELAHERE [Suspect]
     Active Substance: MIRVETUXIMAB SORAVTANSINE-GYNX
     Indication: Recurrent cancer
     Dosage: UNK, 1ST CYCLE
     Route: 042
     Dates: start: 20230927
  2. ELAHERE [Suspect]
     Active Substance: MIRVETUXIMAB SORAVTANSINE-GYNX
     Dosage: UNK, 4TH CYCLE
     Route: 042
     Dates: start: 202311, end: 20231129
  3. ELAHERE [Suspect]
     Active Substance: MIRVETUXIMAB SORAVTANSINE-GYNX
     Dosage: UNK, RECENT 10TH CYCLE
     Route: 042
     Dates: start: 20240131
  4. PREDNISOLONE [Concomitant]
     Active Substance: PREDNISOLONE
     Indication: Dry eye
     Dosage: UNK, TID
     Route: 065
  5. REFRESH OPTIVE [Concomitant]
     Active Substance: CARBOXYMETHYLCELLULOSE SODIUM\GLYCERIN
     Indication: Dry eye
     Dosage: UNK, UNK
     Route: 047

REACTIONS (3)
  - Pneumonitis [Unknown]
  - Infusion related hypersensitivity reaction [Recovered/Resolved]
  - Keratitis [Recovered/Resolved]

NARRATIVE: CASE EVENT DATE: 20231129
